FAERS Safety Report 13526928 (Version 1)
Quarter: 2017Q2

REPORT INFORMATION
  Report Type: Spontaneous
  Country: US (occurrence: US)
  Receive Date: 20170509
  Receipt Date: 20170509
  Transmission Date: 20170830
  Serious: Yes (Other)
  Sender: FDA-Public Use
  Company Number: US-ROCHE-1931822

PATIENT
  Sex: Female

DRUGS (1)
  1. OCREVUS [Suspect]
     Active Substance: OCRELIZUMAB
     Indication: MULTIPLE SCLEROSIS
     Dosage: UNKNOWN
     Route: 042
     Dates: start: 201704

REACTIONS (7)
  - Musculoskeletal stiffness [Not Recovered/Not Resolved]
  - Anger [Recovered/Resolved]
  - Malaise [Unknown]
  - Muscular weakness [Not Recovered/Not Resolved]
  - Heart rate decreased [Recovered/Resolved]
  - Paraesthesia [Unknown]
  - Depressed mood [Recovered/Resolved]
